FAERS Safety Report 15853188 (Version 5)
Quarter: 2019Q3

REPORT INFORMATION
  Report Type: Spontaneous
  Country: US (occurrence: US)
  Receive Date: 20190122
  Receipt Date: 20190729
  Transmission Date: 20191004
  Serious: Yes (Hospitalization)
  Sender: FDA-Public Use
  Company Number: US-VERTEX PHARMACEUTICALS-2019-000554

PATIENT
  Age: 63 Year
  Sex: Female

DRUGS (1)
  1. SYMDEKO [Suspect]
     Active Substance: IVACAFTOR\TEZACAFTOR
     Indication: CYSTIC FIBROSIS
     Dosage: 100MG TEZACAFTOR/150MG IVACAFTOR, AM; 150MG IVACAFTOR, PM
     Route: 048
     Dates: start: 20180605

REACTIONS (11)
  - Dysphonia [Unknown]
  - Hysterectomy [Unknown]
  - Haemoptysis [Unknown]
  - Vaginal discharge [Unknown]
  - Abdominal discomfort [Unknown]
  - Nausea [Unknown]
  - Vaginal haemorrhage [Unknown]
  - Headache [Unknown]
  - Neck mass [Unknown]
  - Skin depigmentation [Unknown]
  - Oropharyngeal pain [Unknown]

NARRATIVE: CASE EVENT DATE: 20190425
